FAERS Safety Report 25075855 (Version 2)
Quarter: 2025Q1

REPORT INFORMATION
  Report Type: Report from Study
  Country: US (occurrence: US)
  Receive Date: 20250313
  Receipt Date: 20250330
  Transmission Date: 20250408
  Serious: Yes (Death, Hospitalization)
  Sender: ABBVIE
  Company Number: US-ABBVIE-6177169

PATIENT
  Age: 92 Year
  Sex: Male

DRUGS (1)
  1. CREON [Suspect]
     Active Substance: PANCRELIPASE AMYLASE\PANCRELIPASE LIPASE\PANCRELIPASE PROTEASE
     Indication: Product used for unknown indication
     Route: 048
     Dates: start: 2024

REACTIONS (4)
  - Death [Fatal]
  - Gastrointestinal disorder [Unknown]
  - Inflammation [Unknown]
  - Infection [Unknown]

NARRATIVE: CASE EVENT DATE: 20250304
